FAERS Safety Report 6786354-X (Version None)
Quarter: 2010Q2

REPORT INFORMATION
  Report Type: 
  Country: None (occurrence: None)
  Receive Date: 20100623
  Receipt Date: 20100420
  Transmission Date: 20101027
  Serious: Yes (Hospitalization)
  Sender: FDA-Public Use
  Company Number: PHHY2010GB06959

PATIENT
  Sex: Female

DRUGS (3)
  1. DICLOFENAC SODIUM [Suspect]
     Dosage: 3 TABLETS DAILY
  2. LANSOPRAZOLE [Concomitant]
     Dosage: 30 MG, UNK
     Route: 048
  3. PARACETAMOL [Concomitant]
     Dosage: UNK

REACTIONS (7)
  - DEPRESSION [None]
  - MUSCLE ATROPHY [None]
  - RENAL FAILURE ACUTE [None]
  - SEPSIS [None]
  - SKIN HYPERPIGMENTATION [None]
  - URINARY TRACT INFECTION [None]
  - WEIGHT DECREASED [None]
